FAERS Safety Report 16418125 (Version 1)
Quarter: 2019Q2

REPORT INFORMATION
  Report Type: Report from Study
  Country: None (occurrence: US)
  Receive Date: 20190611
  Receipt Date: 20190611
  Transmission Date: 20190711
  Serious: Yes (Hospitalization)
  Sender: FDA-Public Use
  Company Number: US-ABBVIE-19K-163-2720038-00

PATIENT
  Age: 95 Year
  Sex: Female

DRUGS (19)
  1. FOLIC ACID. [Concomitant]
     Active Substance: FOLIC ACID
     Indication: VITAMIN SUPPLEMENTATION
     Dosage: MORNING
     Route: 048
  2. METHADONE [Concomitant]
     Active Substance: METHADONE HYDROCHLORIDE
     Indication: PAIN MANAGEMENT
     Dosage: 5 MG/5 ML MORNING
     Route: 048
  3. PANTOPRAZOLE [Concomitant]
     Active Substance: PANTOPRAZOLE
     Indication: GASTROOESOPHAGEAL REFLUX DISEASE
     Dosage: MORNING
     Route: 048
  4. HUMIRA [Suspect]
     Active Substance: ADALIMUMAB
     Indication: CROHN^S DISEASE
     Route: 058
  5. AMLODIPINE [Concomitant]
     Active Substance: AMLODIPINE BESYLATE
     Dosage: TOOK WITH 2.5 MG TOTAL 7.5 MG
     Route: 048
  6. LASIX [Concomitant]
     Active Substance: FUROSEMIDE
     Indication: CARDIAC FAILURE CONGESTIVE
  7. LOSARTAN. [Concomitant]
     Active Substance: LOSARTAN
     Indication: HYPERTENSION
     Dosage: MORNING
     Route: 048
  8. LYRICA [Concomitant]
     Active Substance: PREGABALIN
     Indication: PAIN MANAGEMENT
     Dosage: MORNING
     Route: 048
  9. K-EFFERVESCENT [Concomitant]
     Active Substance: POTASSIUM BICARBONATE
     Indication: MINERAL SUPPLEMENTATION
     Dosage: MORNING
     Route: 048
  10. SYNTHROID [Concomitant]
     Active Substance: LEVOTHYROXINE SODIUM
     Indication: HYPOTHYROIDISM
     Dosage: MORNING
     Route: 048
  11. ASPIRIN. [Concomitant]
     Active Substance: ASPIRIN
     Indication: CEREBROVASCULAR ACCIDENT PROPHYLAXIS
     Dosage: MORNING DELAYED RELEASE (DR/EC)
     Route: 048
  12. LYRICA [Concomitant]
     Active Substance: PREGABALIN
     Dosage: EVENING
     Route: 048
  13. AMLODIPINE [Concomitant]
     Active Substance: AMLODIPINE BESYLATE
     Indication: HYPERTENSION
     Dosage: MORNING
     Route: 048
  14. DULOXETINE. [Concomitant]
     Active Substance: DULOXETINE
     Indication: FIBROMYALGIA
  15. GABAPENTIN. [Concomitant]
     Active Substance: GABAPENTIN
     Indication: PAIN MANAGEMENT
     Dosage: EVENING
     Route: 048
  16. FUROSEMIDE. [Concomitant]
     Active Substance: FUROSEMIDE
     Indication: CARDIAC FAILURE CONGESTIVE
     Dosage: MORNING
     Route: 048
  17. XIFAXAN [Concomitant]
     Active Substance: RIFAXIMIN
     Indication: CROHN^S DISEASE
     Route: 048
  18. DULOXETINE. [Concomitant]
     Active Substance: DULOXETINE
     Indication: PAIN
     Dosage: MORNING DELAYED RELEASE (DR/EC)
     Route: 048
  19. SULFASALAZINE. [Concomitant]
     Active Substance: SULFASALAZINE
     Indication: CROHN^S DISEASE
     Route: 048

REACTIONS (3)
  - Product dispensing error [Unknown]
  - Dyspnoea [Unknown]
  - Small intestinal stenosis [Recovered/Resolved]

NARRATIVE: CASE EVENT DATE: 2019
